FAERS Safety Report 16164711 (Version 1)
Quarter: 2019Q2

REPORT INFORMATION
  Report Type: Report from Study
  Country: US (occurrence: US)
  Receive Date: 20190405
  Receipt Date: 20190405
  Transmission Date: 20190711
  Serious: Yes (Other)
  Sender: FDA-Public Use
  Company Number: US-BAYER-2019-051188

PATIENT
  Age: 56 Year
  Sex: Female
  Weight: 45.35 kg

DRUGS (7)
  1. MULTIVITAMINS [VITAMINS NOS] [Concomitant]
     Active Substance: VITAMINS
     Dosage: UNK
  2. CALCIUM [Concomitant]
     Active Substance: CALCIUM
  3. CALCIUM CARBONATE PCH [Concomitant]
     Dosage: 125
  4. STIVARGA [Suspect]
     Active Substance: REGORAFENIB
     Indication: GASTROINTESTINAL STROMAL TUMOUR
     Dosage: 80 MG DAILY FOR 21 DAYS
     Route: 048
     Dates: start: 20190301
  5. SUTENT [Suspect]
     Active Substance: SUNITINIB MALATE
     Dosage: UNK
  6. ASCORBIC ACID. [Concomitant]
     Active Substance: ASCORBIC ACID
     Dosage: UNK
  7. ASPIRIN EC [Concomitant]
     Active Substance: ASPIRIN
     Dosage: 325 MG

REACTIONS (8)
  - Oral discomfort [Unknown]
  - Pruritus [None]
  - Off label use [None]
  - Skin exfoliation [None]
  - Vomiting [None]
  - Dehydration [None]
  - Rash generalised [None]
  - Decreased appetite [None]

NARRATIVE: CASE EVENT DATE: 20190301
